FAERS Safety Report 8812607 (Version 3)
Quarter: 2013Q1

REPORT INFORMATION
  Report Type: Spontaneous
  Country: FR (occurrence: FR)
  Receive Date: 20120927
  Receipt Date: 20130109
  Transmission Date: 20140127
  Serious: Yes (Hospitalization, Other)
  Sender: FDA-Public Use
  Company Number: FR-PFIZER INC-2012235659

PATIENT
  Age: 67 Year
  Sex: Male

DRUGS (4)
  1. TAHOR [Suspect]
     Dosage: UNK
  2. AMIODARONE [Suspect]
     Dosage: UNK
     Dates: start: 2008
  3. PLAVIX [Concomitant]
     Dosage: UNK
  4. APROVEL [Concomitant]
     Dosage: UNK

REACTIONS (5)
  - Pruritus [Not Recovered/Not Resolved]
  - Prostate cancer [Unknown]
  - Dry skin [Not Recovered/Not Resolved]
  - Erythema [Not Recovered/Not Resolved]
  - Scratch [Not Recovered/Not Resolved]
